FAERS Safety Report 8532024-7 (Version None)
Quarter: 2012Q3

REPORT INFORMATION
  Report Type: 
  Country: None (occurrence: None)
  Receive Date: 20120723
  Receipt Date: 20120709
  Transmission Date: 20120928
  Serious: Yes (Death)
  Sender: FDA-Public Use
  Company Number: DE-JNJFOC-20120516062

PATIENT
  Sex: Female

DRUGS (7)
  1. XARELTO [Suspect]
     Route: 048
     Dates: start: 20120116, end: 20120130
  2. PENTAERYTHRITOL TETRANITRATE [Concomitant]
     Route: 048
     Dates: start: 20120116, end: 20120209
  3. XARELTO [Suspect]
     Indication: PULMONARY EMBOLISM
     Route: 048
     Dates: start: 20120131, end: 20120209
  4. ENOXAPARIN SODIUM [Concomitant]
     Dates: start: 20120101
  5. ACETAMINOPHEN, ASPIRIN AND CAFFEINE [Suspect]
     Indication: HEADACHE
     Dates: start: 20120207, end: 20120208
  6. NORMOC [Concomitant]
  7. MAGNESIUM DIASPORAL [Concomitant]

REACTIONS (5)
  - HEPATIC FAILURE [None]
  - MULTI-ORGAN FAILURE [None]
  - RENAL FAILURE [None]
  - RIGHT VENTRICULAR FAILURE [None]
  - HAEMATURIA [None]
